FAERS Safety Report 4504455-3 (Version None)
Quarter: 2004Q4

REPORT INFORMATION
  Report Type: 
  Country: None (occurrence: None)
  Receive Date: 20041117
  Receipt Date: 20041117
  Transmission Date: 20050328
  Serious: Yes (Hospitalization)
  Sender: FDA-Public Use
  Company Number: None

PATIENT
  Age: 41 Year
  Sex: Female
  Weight: 62.6 kg

DRUGS (3)
  1. PRIMAXIN [Suspect]
     Indication: OSTEOMYELITIS
     Dosage: 250 MG IVPB BID
     Route: 042
     Dates: start: 20041007, end: 20041016
  2. D5WS [Concomitant]
  3. STERILE WATER [Concomitant]

REACTIONS (3)
  - BACK PAIN [None]
  - NAUSEA [None]
  - VOMITING [None]
